FAERS Safety Report 19697720 (Version 1)
Quarter: 2021Q3

REPORT INFORMATION
  Report Type: Spontaneous
  Country: JP (occurrence: JP)
  Receive Date: 20210813
  Receipt Date: 20210813
  Transmission Date: 20211014
  Serious: Yes (Hospitalization, Other)
  Sender: FDA-Public Use
  Company Number: JP-GLAXOSMITHKLINE-JP2021JPN168458

PATIENT
  Age: 4 Decade
  Sex: Female
  Weight: 63 kg

DRUGS (18)
  1. PROGRAF [Concomitant]
     Active Substance: TACROLIMUS
     Indication: SYSTEMIC LUPUS ERYTHEMATOSUS
  2. BENLYSTA [Suspect]
     Active Substance: BELIMUMAB
     Indication: SYSTEMIC LUPUS ERYTHEMATOSUS
     Dosage: 10 MG/KG, ONCE EVERY 4 WEEKS
     Route: 041
     Dates: start: 20180628, end: 20180726
  3. BAKTAR [Concomitant]
     Active Substance: SULFAMETHOXAZOLE\TRIMETHOPRIM
     Indication: PROPHYLAXIS
  4. MAXALT [Concomitant]
     Active Substance: RIZATRIPTAN BENZOATE
  5. PREDNISOLONE. [Concomitant]
     Active Substance: PREDNISOLONE
     Indication: SYSTEMIC LUPUS ERYTHEMATOSUS
     Dosage: 11 MG
     Dates: end: 20181121
  6. PREDNISOLONE. [Concomitant]
     Active Substance: PREDNISOLONE
     Dosage: 10.5 MG
     Dates: start: 20181122
  7. MYSLEE [Concomitant]
     Active Substance: ZOLPIDEM TARTRATE
  8. MUCOSTA [Concomitant]
     Active Substance: REBAMIPIDE
     Indication: PROPHYLAXIS
  9. PARIET [Concomitant]
     Active Substance: RABEPRAZOLE SODIUM
     Indication: PROPHYLAXIS
  10. PLAQUENIL [Concomitant]
     Active Substance: HYDROXYCHLOROQUINE SULFATE
     Indication: SYSTEMIC LUPUS ERYTHEMATOSUS
  11. EDIROL [Concomitant]
     Active Substance: ELDECALCITOL
     Indication: PROPHYLAXIS
  12. BENLYSTA [Suspect]
     Active Substance: BELIMUMAB
     Dosage: UNK
  13. TRYPTANOL (AMITRIPTYLINE HYDROCHLORIDE) [Concomitant]
  14. BENLYSTA [Suspect]
     Active Substance: BELIMUMAB
     Dosage: 10 MG/KG, ONCE EVERY 2 WEEKS
     Route: 041
     Dates: start: 20190214, end: 20190408
  15. BENLYSTA [Suspect]
     Active Substance: BELIMUMAB
     Indication: SYSTEMIC LUPUS ERYTHEMATOSUS
     Dosage: 200 MG, WEEKLY
     Route: 058
     Dates: start: 20190509, end: 20190701
  16. LIXIANA [Concomitant]
     Active Substance: EDOXABAN TOSYLATE
  17. DEPAS (ETIZOLAM) [Concomitant]
     Active Substance: ETIZOLAM
  18. TACROLIMUS. [Concomitant]
     Active Substance: TACROLIMUS

REACTIONS (4)
  - Adverse event [Recovered/Resolved]
  - Genital haemorrhage [Recovered/Resolved]
  - Genital haemorrhage [Recovered/Resolved]
  - Adenomyosis [Unknown]

NARRATIVE: CASE EVENT DATE: 20191215
